FAERS Safety Report 22186180 (Version 1)
Quarter: 2023Q2

REPORT INFORMATION
  Report Type: Spontaneous
  Country: US (occurrence: US)
  Receive Date: 20230407
  Receipt Date: 20230407
  Transmission Date: 20230721
  Serious: Yes (Hospitalization, Other)
  Sender: FDA-Public Use
  Company Number: US-GLAXOSMITHKLINE-US2023048501

PATIENT

DRUGS (2)
  1. NUCALA [Suspect]
     Active Substance: MEPOLIZUMAB
     Indication: Product used for unknown indication
     Dosage: UNK
  2. XOLAIR [Suspect]
     Active Substance: OMALIZUMAB
     Indication: Polyp
     Dosage: UNK

REACTIONS (3)
  - Polyp [Not Recovered/Not Resolved]
  - Sinusitis bacterial [Recovered/Resolved with Sequelae]
  - Condition aggravated [Unknown]

NARRATIVE: CASE EVENT DATE: 20230307
